FAERS Safety Report 16639616 (Version 3)
Quarter: 2019Q3

REPORT INFORMATION
  Report Type: Report from Study
  Country: GR (occurrence: GR)
  Receive Date: 20190727
  Receipt Date: 20190828
  Transmission Date: 20191004
  Serious: Yes (Death, Life-Threatening)
  Sender: FDA-Public Use
  Company Number: GR-AMGEN-GRCCT2019119995

PATIENT
  Age: 63 Year
  Sex: Female
  Weight: 90 kg

DRUGS (8)
  1. GLUCOPHAGE [Concomitant]
     Active Substance: METFORMIN HYDROCHLORIDE
     Dosage: 1000 MILLIGRAM
     Route: 048
     Dates: start: 20150101, end: 20190724
  2. LOBIVON [Concomitant]
     Active Substance: NEBIVOLOL HYDROCHLORIDE
     Dosage: 5 MILLIGRAM
     Route: 048
     Dates: start: 20171111, end: 20190724
  3. LANTUS [Concomitant]
     Active Substance: INSULIN GLARGINE
     Dosage: 10 UNK
     Route: 058
     Dates: start: 20150101, end: 20190724
  4. LENALIDOMIDE [Concomitant]
     Active Substance: LENALIDOMIDE
     Indication: PLASMA CELL MYELOMA
     Dosage: 25 MILLIGRAM
     Dates: start: 20190711, end: 20190711
  5. APIDRA [Concomitant]
     Active Substance: INSULIN GLULISINE
     Dosage: 25 UNK
     Route: 058
     Dates: start: 20150101, end: 20190724
  6. DEXAMETHASONE. [Concomitant]
     Active Substance: DEXAMETHASONE
     Indication: PLASMA CELL MYELOMA
     Dosage: 40 MILLIGRAM
     Dates: start: 20190711, end: 20190718
  7. CARFILZOMIB [Suspect]
     Active Substance: CARFILZOMIB
     Indication: PLASMA CELL MYELOMA
     Dosage: 110 MILLIGRAM, PER CHEMO REGIM
     Route: 042
     Dates: start: 20190711, end: 20190718
  8. COPALIA [Concomitant]
     Active Substance: AMLODIPINE BESYLATE\VALSARTAN
     Dosage: UNK
     Route: 048
     Dates: start: 20171111, end: 20190724

REACTIONS (1)
  - Death [Fatal]

NARRATIVE: CASE EVENT DATE: 20190724
